FAERS Safety Report 6008808-6 (Version None)
Quarter: 2008Q4

REPORT INFORMATION
  Report Type: 
  Country: None (occurrence: None)
  Receive Date: 20081217
  Receipt Date: 20081217
  Transmission Date: 20090506
  Serious: Yes (Hospitalization)
  Sender: FDA-Public Use
  Company Number: None

PATIENT
  Sex: Female
  Weight: 117.9 kg

DRUGS (4)
  1. CELEBREX [Suspect]
     Dosage: 10400 MG
  2. ACCUTANE [Suspect]
     Dosage: 2340 MG
  3. TEMOZOLOMIDE [Suspect]
     Dosage: 2450 MG
  4. THALIDOMIDE [Suspect]
     Dosage: 5200 MG

REACTIONS (4)
  - CELLULITIS [None]
  - DERMATITIS INFECTED [None]
  - ORAL VIRAL INFECTION [None]
  - TOXIC EPIDERMAL NECROLYSIS [None]
